FAERS Safety Report 16795065 (Version 1)
Quarter: 2019Q3

REPORT INFORMATION
  Report Type: Spontaneous
  Country: BE (occurrence: US)
  Receive Date: 20190720
  Receipt Date: 20190720
  Transmission Date: 20191005
  Serious: Yes (Hospitalization)
  Sender: FDA-Public Use
  Company Number: None

PATIENT
  Age: 20 Year
  Sex: Male
  Weight: 62 kg

DRUGS (10)
  1. CARBOPLATIN. [Suspect]
     Active Substance: CARBOPLATIN
     Dates: end: 20190526
  2. G-CSF (FILGRASTIM, AMGEN) [Suspect]
     Active Substance: FILGRASTIM
     Dates: end: 20190531
  3. ETOPOSIDE (VP-16) [Suspect]
     Active Substance: ETOPOSIDE
     Dates: end: 20190526
  4. PROPOFOL. [Concomitant]
     Active Substance: PROPOFOL
  5. IFOSFAMIDE. [Suspect]
     Active Substance: IFOSFAMIDE
     Dates: end: 20190508
  6. MORPHIN [Concomitant]
     Active Substance: MORPHINE
  7. NEOSTIGMIN [Concomitant]
     Active Substance: NEOSTIGMINE
  8. TAXOL [Suspect]
     Active Substance: PACLITAXEL
     Dates: end: 20190503
  9. ISOFLURAN [Concomitant]
     Active Substance: ISOFLURANE
  10. NEULASTA [Suspect]
     Active Substance: PEGFILGRASTIM
     Dates: end: 20190531

REACTIONS (3)
  - Respiratory failure [None]
  - Neutrophil count decreased [None]
  - Sepsis [None]

NARRATIVE: CASE EVENT DATE: 20190606
